FAERS Safety Report 20298629 (Version 1)
Quarter: 2022Q1

REPORT INFORMATION
  Report Type: Spontaneous
  Country: CN (occurrence: CN)
  Receive Date: 20220105
  Receipt Date: 20220105
  Transmission Date: 20220424
  Serious: Yes (Hospitalization, Other)
  Sender: FDA-Public Use
  Company Number: CN-SA-SAC20211231000139

PATIENT
  Age: 71 Year
  Sex: Female
  Weight: 76 kg

DRUGS (1)
  1. ENOXAPARIN SODIUM [Suspect]
     Active Substance: ENOXAPARIN SODIUM
     Indication: Venous thrombosis limb
     Dosage: 0.4 ML, QD
     Route: 058
     Dates: start: 20210830, end: 20210901

REACTIONS (1)
  - Platelet count decreased [Recovering/Resolving]

NARRATIVE: CASE EVENT DATE: 20210901
